FAERS Safety Report 4876633-5 (Version None)
Quarter: 2006Q1

REPORT INFORMATION
  Report Type: 
  Country: None (occurrence: None)
  Receive Date: 20060110
  Receipt Date: 20030605
  Transmission Date: 20060701
  Serious: Yes (Hospitalization, Disabling, Other)
  Sender: FDA-Public Use
  Company Number: US-MERCK-0306USA00790

PATIENT
  Age: 53 Year
  Sex: Female
  Weight: 161 kg

DRUGS (24)
  1. VIOXX [Suspect]
     Indication: INTERVERTEBRAL DISC PROTRUSION
     Route: 048
     Dates: start: 20000101, end: 20010830
  2. VIOXX [Suspect]
     Route: 048
     Dates: start: 20001228
  3. VIOXX [Suspect]
     Indication: ARTHRITIS
     Route: 048
     Dates: start: 20000101, end: 20010830
  4. VIOXX [Suspect]
     Route: 048
     Dates: start: 20001228
  5. SOMA [Concomitant]
     Route: 048
  6. LEVBID [Concomitant]
     Route: 065
  7. DILANTIN [Concomitant]
     Indication: CONVULSION
     Route: 065
  8. PAXIL CR [Concomitant]
     Route: 065
  9. ELAVIL [Concomitant]
     Route: 065
  10. LORATADINE [Concomitant]
     Route: 065
  11. PHENERGAN (PROMETHAZINE HYDROCHLORIDE) [Concomitant]
     Route: 065
  12. PROTONIX [Concomitant]
     Indication: GASTROOESOPHAGEAL REFLUX DISEASE
     Route: 065
     Dates: start: 20000817
  13. CARAFATE [Concomitant]
     Route: 065
  14. ACIPHEX [Concomitant]
     Route: 065
  15. LOMOTIL [Concomitant]
     Route: 065
  16. QUESTRAN [Concomitant]
     Route: 065
  17. ATENOLOL [Concomitant]
     Route: 065
  18. LASIX [Concomitant]
     Route: 065
  19. POTASSIUM (UNSPECIFIED) [Concomitant]
     Route: 065
  20. PREMARIN [Concomitant]
     Route: 065
  21. PAXIL [Concomitant]
     Route: 065
  22. SYNTHROID [Concomitant]
     Route: 065
  23. DARVOCET-N 100 [Concomitant]
     Route: 065
  24. MELATONINA [Concomitant]
     Route: 065

REACTIONS (48)
  - ADVERSE EVENT [None]
  - ANXIETY [None]
  - ARRHYTHMIA [None]
  - BACK INJURY [None]
  - BLOOD PRESSURE INCREASED [None]
  - BRONCHITIS [None]
  - BRONCHITIS ACUTE [None]
  - CARDIAC FAILURE CONGESTIVE [None]
  - CARDIO-RESPIRATORY ARREST [None]
  - CHEST PAIN [None]
  - CHRONIC OBSTRUCTIVE PULMONARY DISEASE [None]
  - CONVULSION [None]
  - DIARRHOEA [None]
  - DRUG INEFFECTIVE [None]
  - EAR PAIN [None]
  - FALL [None]
  - FRACTURED COCCYX [None]
  - GASTROOESOPHAGEAL REFLUX DISEASE [None]
  - HEADACHE [None]
  - HEPATITIS C [None]
  - HEPATOCELLULAR DAMAGE [None]
  - HIATUS HERNIA [None]
  - HYPERLIPIDAEMIA [None]
  - HYPERTENSION [None]
  - INSOMNIA [None]
  - JOINT INJURY [None]
  - LACUNAR INFARCTION [None]
  - LIVER FUNCTION TEST ABNORMAL [None]
  - MALAISE [None]
  - MELANOCYTIC NAEVUS [None]
  - MERALGIA PARAESTHETICA [None]
  - MONARTHRITIS [None]
  - NERVOUSNESS [None]
  - OBESITY [None]
  - OSTEOARTHRITIS [None]
  - PALPITATIONS [None]
  - PULMONARY FIBROSIS [None]
  - PYREXIA [None]
  - SINUS TACHYCARDIA [None]
  - SPINAL FRACTURE [None]
  - SPLEEN DISORDER [None]
  - SWELLING [None]
  - SYNCOPE [None]
  - TRICUSPID VALVE INCOMPETENCE [None]
  - ULCER [None]
  - VENTRICULAR EXTRASYSTOLES [None]
  - VISION BLURRED [None]
  - WEIGHT DECREASED [None]
